FAERS Safety Report 20189065 (Version 1)
Quarter: 2021Q4

REPORT INFORMATION
  Report Type: Spontaneous
  Country: US (occurrence: None)
  Receive Date: 20211215
  Receipt Date: 20211215
  Transmission Date: 20220303
  Serious: Yes (Hospitalization)
  Sender: FDA-Public Use
  Company Number: None

PATIENT
  Sex: Male

DRUGS (1)
  1. VIGABATRIN FOR ORAL SOLUTION USP, 500 MG [Suspect]
     Active Substance: VIGABATRIN
     Indication: Epilepsy
     Dosage: FREQUENCY : TWICE A DAY;?
     Route: 048
     Dates: start: 202111

REACTIONS (4)
  - Tremor [None]
  - Lethargy [None]
  - Emotional poverty [None]
  - Drooling [None]
